FAERS Safety Report 5106943-8 (Version None)
Quarter: 2006Q3

REPORT INFORMATION
  Report Type: 
  Country: None (occurrence: None)
  Receive Date: 20060913
  Receipt Date: 20060707
  Transmission Date: 20061208
  Serious: Yes (Hospitalization)
  Sender: FDA-Public Use
  Company Number: US200609002131

PATIENT
  Age: 53 Year
  Sex: Female
  Weight: 102 kg

DRUGS (3)
  1. ZYPREXA [Suspect]
     Indication: DRUG USE FOR UNKNOWN INDICATION
     Dosage: 2.5 MG, ORAL
     Route: 048
     Dates: start: 19990809, end: 20011101
  2. GEODON [Concomitant]
  3. DEPAKOTE [Concomitant]

REACTIONS (2)
  - CARDIAC DISORDER [None]
  - DIABETES MELLITUS [None]
